FAERS Safety Report 9675949 (Version 2)
Quarter: 2013Q4

REPORT INFORMATION
  Report Type: Spontaneous
  Country: IT (occurrence: IT)
  Receive Date: 20131107
  Receipt Date: 20131112
  Transmission Date: 20140711
  Serious: Yes (Hospitalization)
  Sender: FDA-Public Use
  Company Number: IT-PFIZER INC-2013315958

PATIENT
  Age: 77 Year
  Sex: Male

DRUGS (4)
  1. IRINOTECAN HCL [Suspect]
     Indication: COLON CANCER
     Dosage: 290 MG, CYCLIC
     Route: 042
     Dates: start: 20130404, end: 20130618
  2. 1-(?-D-5^-DEOSSIRIBOFURANOSIL)-5-FLUOROURACILE [Suspect]
     Indication: COLON CANCER
     Dosage: 2440 MG, CYCLIC
     Route: 042
     Dates: start: 20130404, end: 20130618
  3. TIKLID [Concomitant]
  4. OMNIC [Concomitant]

REACTIONS (1)
  - Peripheral motor neuropathy [Recovering/Resolving]
